FAERS Safety Report 12769945 (Version 1)
Quarter: 2016Q3

REPORT INFORMATION
  Report Type: Report from Study
  Country: GB (occurrence: GB)
  Receive Date: 20160922
  Receipt Date: 20160922
  Transmission Date: 20161109
  Serious: Yes (Hospitalization)
  Sender: FDA-Public Use
  Company Number: GB-ACCORD-044125

PATIENT
  Age: 81 Year
  Sex: Female

DRUGS (9)
  1. ACETYLSALICYLIC ACID [Concomitant]
     Active Substance: ASPIRIN
     Indication: ANTIPLATELET THERAPY
     Dates: start: 1994, end: 20160322
  2. BETAXOLOL/BETAXOLOL HYDROCHLORIDE [Concomitant]
     Indication: HYPERTENSION
     Dates: start: 20150727
  3. LISINOPRIL/LISINOPRIL DIHYDRATE [Concomitant]
     Indication: HYPERTENSION
     Dates: start: 20150727
  4. TORASEMIDE/TORASEMIDE SODIUM [Concomitant]
     Indication: CARDIAC FAILURE CONGESTIVE
     Dates: start: 20150727
  5. EPLERENONE. [Concomitant]
     Active Substance: EPLERENONE
     Indication: CARDIAC FAILURE CONGESTIVE
     Dates: start: 20150727
  6. LEVOTHYROXINE/LEVOTHYROXINE SODIUM [Concomitant]
     Indication: HYPOTHYROIDISM
     Dates: start: 20141019
  7. ALLOPURINOL/ALLOPURINOL SODIUM [Concomitant]
     Indication: HYPERURICAEMIA
     Dates: start: 20150727
  8. OPIPRAMOL/OPIPRAMOL HYDROCHLORIDE [Concomitant]
     Indication: SLEEP DISORDER
  9. SIMVASTATIN. [Suspect]
     Active Substance: SIMVASTATIN
     Indication: HYPERLIPIDAEMIA
     Route: 048
     Dates: start: 20150727

REACTIONS (1)
  - Cholecystitis [Recovered/Resolved]

NARRATIVE: CASE EVENT DATE: 20160322
